FAERS Safety Report 14194287 (Version 2)
Quarter: 2018Q3

REPORT INFORMATION
  Report Type: Spontaneous
  Country: US (occurrence: US)
  Receive Date: 20171116
  Receipt Date: 20180911
  Transmission Date: 20181010
  Serious: No
  Sender: FDA-Public Use
  Company Number: US-PFIZER INC-2017489923

PATIENT
  Age: 82 Year
  Sex: Female
  Weight: 64 kg

DRUGS (2)
  1. ATORVASTATIN CALCIUM. [Suspect]
     Active Substance: ATORVASTATIN CALCIUM
     Indication: BLOOD CHOLESTEROL INCREASED
     Dosage: UNK
  2. ASACOL [Concomitant]
     Active Substance: MESALAMINE
     Indication: COLITIS
     Dosage: 400 MG, 4X/DAY
     Route: 048
     Dates: end: 2015

REACTIONS (2)
  - Headache [Recovered/Resolved]
  - Nausea [Recovered/Resolved]
